FAERS Safety Report 9797537 (Version 1)
Quarter: 2014Q1

REPORT INFORMATION
  Report Type: Spontaneous
  Country: IT (occurrence: IT)
  Receive Date: 20140106
  Receipt Date: 20140106
  Transmission Date: 20141002
  Serious: Yes (Hospitalization)
  Sender: FDA-Public Use
  Company Number: PHHY2013IT150248

PATIENT
  Sex: Female

DRUGS (4)
  1. OLANZAPINE [Suspect]
     Indication: PSYCHOTIC DISORDER
     Dosage: 20 MG, QD
     Route: 048
     Dates: start: 20130203, end: 20130527
  2. LORAZEPAM [Suspect]
     Indication: PSYCHOTIC DISORDER
     Dosage: 2.5 MG, QD
     Route: 048
     Dates: start: 20130203, end: 20130527
  3. MOVICOL [Concomitant]
  4. METFORMIN [Concomitant]

REACTIONS (2)
  - Coma [Recovering/Resolving]
  - Hyponatraemia [Recovering/Resolving]
